FAERS Safety Report 9741933 (Version 1)
Quarter: 2013Q4

REPORT INFORMATION
  Report Type: Spontaneous
  Country: GB (occurrence: GB)
  Receive Date: 20131210
  Receipt Date: 20131210
  Transmission Date: 20140711
  Serious: Yes (Hospitalization, Disabling)
  Sender: FDA-Public Use
  Company Number: GB-ACCORD-020552

PATIENT
  Age: 69 Year
  Sex: Female
  Weight: 71 kg

DRUGS (10)
  1. TRAMADOL [Suspect]
     Indication: PRODUCT USED FOR UNKNOWN INDICATION
     Dates: start: 20131115
  2. SOLIFENACIN SUCCINATE [Concomitant]
     Dates: start: 20111229
  3. LINAGLIPTIN [Concomitant]
     Dates: start: 20130805
  4. METFORMIN [Concomitant]
     Dates: start: 20111229
  5. PARACETAMOL [Concomitant]
     Dates: start: 20130621
  6. CLOPIDOGREL [Concomitant]
     Dates: start: 20111229
  7. BUSCOPAN [Concomitant]
     Dates: start: 20130621
  8. GLICLAZIDE [Concomitant]
     Dates: start: 20130902
  9. PANTOPRAZOLE [Concomitant]
     Dates: start: 20130902
  10. SIMVASTATIN [Concomitant]
     Dates: start: 20111229

REACTIONS (1)
  - Loss of consciousness [Recovered/Resolved]
